FAERS Safety Report 7364034-X (Version None)
Quarter: 2011Q1

REPORT INFORMATION
  Report Type: 
  Country: None (occurrence: None)
  Receive Date: 20110321
  Receipt Date: 20110307
  Transmission Date: 20110831
  Serious: Yes (Hospitalization)
  Sender: FDA-Public Use
  Company Number: PHHY2010DE82515

PATIENT
  Sex: Female

DRUGS (10)
  1. METOPROLOL SUCCINATE [Concomitant]
     Dosage: 47.5 MG, UNK
     Route: 048
  2. MACROGOL [Concomitant]
     Indication: CONSTIPATION
     Dosage: UNK
     Dates: start: 20101027
  3. DEXAMETHASONE [Concomitant]
     Indication: OEDEMA
     Dosage: UNK
     Dates: start: 20101027, end: 20101101
  4. ZOMETA [Suspect]
     Indication: BONE DISORDER
     Dosage: 4 MG, UNK
     Route: 042
     Dates: start: 20060824
  5. ZOMETA [Suspect]
     Dosage: 4 MG
     Route: 042
     Dates: start: 20100112
  6. VINORELBINE [Concomitant]
     Dosage: 90 MG DAILY
     Route: 048
     Dates: start: 20100617
  7. OXYGESIC [Concomitant]
     Indication: PAIN
     Dosage: 40 MG, UNK
     Route: 048
  8. AROMASIN [Concomitant]
     Dosage: UNK
     Dates: start: 20070215
  9. PANTOZOL [Concomitant]
     Dosage: 40 MG, UNK
     Route: 048
  10. NAVELBINE [Concomitant]
     Dosage: UNK
     Dates: end: 20100901

REACTIONS (8)
  - BONE MARROW DISORDER [None]
  - GENERAL PHYSICAL HEALTH DETERIORATION [None]
  - PANCYTOPENIA [None]
  - NEOPLASM MALIGNANT [None]
  - FEMUR FRACTURE [None]
  - METASTASES TO BONE [None]
  - OSTEOLYSIS [None]
  - FACIAL PARESIS [None]
